FAERS Safety Report 4484270-X (Version None)
Quarter: 2004Q4

REPORT INFORMATION
  Report Type: 
  Country: None (occurrence: None)
  Receive Date: 20041025
  Receipt Date: 20041020
  Transmission Date: 20050328
  Serious: Yes (Other)
  Sender: FDA-Public Use
  Company Number: DE-GLAXOSMITHKLINE-D0044973A

PATIENT
  Age: 59 Year
  Sex: Male
  Weight: 98 kg

DRUGS (4)
  1. AVANDIA [Suspect]
     Dosage: 4MG PER DAY
     Route: 048
     Dates: start: 20040120, end: 20040727
  2. METFORMIN HCL [Concomitant]
     Dosage: 850MG THREE TIMES PER DAY
     Route: 048
     Dates: end: 20040727
  3. IBUPROFEN [Concomitant]
     Indication: BACK PAIN
     Dosage: 400MG THREE TIMES PER DAY
     Route: 048
     Dates: start: 20040717, end: 20040727
  4. LISINOPRIL [Concomitant]
     Indication: HYPERTONIA
     Dosage: 10MG PER DAY
     Route: 048
     Dates: start: 20040101, end: 20040727

REACTIONS (1)
  - HEPATITIS CHOLESTATIC [None]
